FAERS Safety Report 16214768 (Version 2)
Quarter: 2019Q2

REPORT INFORMATION
  Report Type: Spontaneous
  Country: US (occurrence: US)
  Receive Date: 20190418
  Receipt Date: 20190516
  Transmission Date: 20190711
  Serious: No
  Sender: FDA-Public Use
  Company Number: US-GILEAD-2019-0402399

PATIENT
  Age: 52 Year
  Sex: Male

DRUGS (2)
  1. MOTRIN [Concomitant]
     Active Substance: IBUPROFEN
  2. BIKTARVY [Suspect]
     Active Substance: BICTEGRAVIR SODIUM\EMTRICITABINE\TENOFOVIR ALAFENAMIDE FUMARATE
     Indication: HIV INFECTION
     Dosage: UNK
     Route: 065

REACTIONS (10)
  - Flushing [Unknown]
  - Sputum discoloured [Unknown]
  - Feeling hot [Not Recovered/Not Resolved]
  - Pyrexia [Unknown]
  - Dyspnoea [Unknown]
  - Respiration abnormal [Unknown]
  - Hypersensitivity [Not Recovered/Not Resolved]
  - Productive cough [Unknown]
  - Burning sensation [Not Recovered/Not Resolved]
  - Night sweats [Unknown]

NARRATIVE: CASE EVENT DATE: 20190409
